FAERS Safety Report 9370356 (Version 4)
Quarter: 2013Q3

REPORT INFORMATION
  Report Type: Report from Study
  Country: CA (occurrence: CA)
  Receive Date: 20130626
  Receipt Date: 20130809
  Transmission Date: 20140515
  Serious: Yes (Other)
  Sender: FDA-Public Use
  Company Number: CA-ABBOTT-13P-028-1110244-00

PATIENT
  Age: 26 Year
  Sex: Female

DRUGS (2)
  1. HUMIRA [Suspect]
     Indication: CROHN^S DISEASE
     Route: 058
     Dates: start: 20080410
  2. HUMIRA [Suspect]
     Route: 058
     Dates: start: 20130624

REACTIONS (4)
  - Anaemia [Unknown]
  - Dyspnoea [Recovering/Resolving]
  - Blood iron decreased [Recovering/Resolving]
  - Malaise [Unknown]
